FAERS Safety Report 5702562-0 (Version None)
Quarter: 2008Q2

REPORT INFORMATION
  Report Type: 
  Country: None (occurrence: None)
  Receive Date: 20080410
  Receipt Date: 20080410
  Transmission Date: 20081010
  Serious: Yes (Other)
  Sender: FDA-Public Use
  Company Number: None

PATIENT
  Age: 55 Year
  Sex: Female
  Weight: 129.7287 kg

DRUGS (1)
  1. GABAPENTIN [Suspect]
     Indication: PAIN IN EXTREMITY
     Dosage: 300MG  2X/DAY
     Dates: start: 20080408, end: 20080409

REACTIONS (12)
  - DIPLOPIA [None]
  - DYSPHONIA [None]
  - EYE SWELLING [None]
  - FEELING ABNORMAL [None]
  - HAEMORRHAGE [None]
  - HALLUCINATION [None]
  - HYPERSENSITIVITY [None]
  - PAIN [None]
  - SCAB [None]
  - SCRATCH [None]
  - SOMNOLENCE [None]
  - SPEECH DISORDER [None]
